FAERS Safety Report 18489399 (Version 1)
Quarter: 2020Q4

REPORT INFORMATION
  Report Type: Other
  Country: KZ (occurrence: KZ)
  Receive Date: 20201111
  Receipt Date: 20201111
  Transmission Date: 20210114
  Serious: Yes (Death, Other)
  Sender: FDA-Public Use
  Company Number: KZ-GLENMARK PHARMACEUTICALS-2020GMK050318

PATIENT

DRUGS (1)
  1. LIZOLID-600 TABLETS [Suspect]
     Active Substance: LINEZOLID
     Indication: PULMONARY TUBERCULOMA
     Dosage: UNK
     Route: 048
     Dates: start: 20190910, end: 20201024

REACTIONS (3)
  - Death [Fatal]
  - Product use in unapproved indication [Unknown]
  - Product use issue [Unknown]

NARRATIVE: CASE EVENT DATE: 20190910
